FAERS Safety Report 20955884 (Version 1)
Quarter: 2022Q2

REPORT INFORMATION
  Report Type: Spontaneous
  Country: US (occurrence: None)
  Receive Date: 20220614
  Receipt Date: 20220614
  Transmission Date: 20220721
  Serious: No
  Sender: FDA-Public Use
  Company Number: US-MDD US Operations-MDD202110-002078

PATIENT
  Age: 67 Year
  Sex: Male

DRUGS (3)
  1. APOKYN [Suspect]
     Active Substance: APOMORPHINE HYDROCHLORIDE
     Indication: Parkinson^s disease
     Route: 058
     Dates: start: 20190515
  2. APOKYN [Suspect]
     Active Substance: APOMORPHINE HYDROCHLORIDE
     Route: 058
     Dates: start: 20190608
  3. APOKYN [Suspect]
     Active Substance: APOMORPHINE HYDROCHLORIDE
     Route: 058
     Dates: start: 201906

REACTIONS (7)
  - On and off phenomenon [Unknown]
  - Condition aggravated [Unknown]
  - Weight decreased [Unknown]
  - Dyskinesia [Unknown]
  - Blood pressure decreased [Unknown]
  - Device malfunction [Unknown]
  - Incorrect dose administered [Unknown]
